FAERS Safety Report 9091492 (Version 1)
Quarter: 2013Q1

REPORT INFORMATION
  Report Type: Report from Study
  Country: US (occurrence: US)
  Receive Date: 20130131
  Receipt Date: 20130131
  Transmission Date: 20140127
  Serious: Yes (Hospitalization)
  Sender: FDA-Public Use
  Company Number: US-ABBOTT-12P-163-0966748-00

PATIENT
  Age: 50 None
  Sex: Male
  Weight: 97.16 kg

DRUGS (10)
  1. HUMIRA [Suspect]
     Indication: CROHN^S DISEASE
     Dates: start: 20120504
  2. DIOVAN [Concomitant]
     Indication: HYPERTENSION
     Route: 048
  3. PENTASA [Concomitant]
     Indication: CROHN^S DISEASE
  4. PENTASA [Concomitant]
  5. ENTOCORT [Concomitant]
     Indication: CROHN^S DISEASE
     Dosage: 3 CAPSULES DAILY
  6. ENTOCORT [Concomitant]
  7. BENTYL [Concomitant]
     Indication: MUSCLE SPASMS
  8. PAXIL [Concomitant]
     Indication: DEPRESSION
     Dosage: WEANED SELF OFF
  9. HYDROCODONE [Concomitant]
     Indication: CROHN^S DISEASE
     Route: 048
  10. HYDROCODONE [Concomitant]
     Indication: PAIN

REACTIONS (10)
  - Syncope [Recovered/Resolved]
  - Dehydration [Recovered/Resolved]
  - Diarrhoea [Recovering/Resolving]
  - Amnesia [Not Recovered/Not Resolved]
  - Anxiety [Not Recovered/Not Resolved]
  - Injection site pain [Not Recovered/Not Resolved]
  - Diarrhoea haemorrhagic [Unknown]
  - Gastrointestinal pain [Unknown]
  - Vitamin B12 decreased [Unknown]
  - Blood iron decreased [Unknown]
